FAERS Safety Report 10144888 (Version 1)
Quarter: 2014Q2

REPORT INFORMATION
  Report Type: Spontaneous
  Country: US (occurrence: US)
  Receive Date: 20140430
  Receipt Date: 20140430
  Transmission Date: 20141212
  Serious: No
  Sender: FDA-Public Use
  Company Number: US-SANOFI-AVENTIS-2013SA081205

PATIENT
  Sex: Female

DRUGS (7)
  1. DEMEROL [Suspect]
     Route: 065
  2. VENLAFAXINE HYDROCHLORIDE [Concomitant]
     Indication: DEPRESSION
     Route: 065
     Dates: start: 20110303
  3. HYDROCODONE BITARTRATE/PARACETAMOL [Concomitant]
     Indication: BACK PAIN
     Dosage: 5-500 MG ORAL TABLET
     Route: 065
     Dates: start: 20110303
  4. TIZANIDINE HYDROCHLORIDE [Concomitant]
     Indication: BACK PAIN
     Route: 065
     Dates: start: 20110531
  5. PREMARIN [Concomitant]
     Indication: MENOPAUSE
     Route: 065
     Dates: start: 20110531
  6. FLUCONAZOLE [Concomitant]
     Indication: UPPER RESPIRATORY TRACT INFECTION
     Route: 065
     Dates: start: 20130110
  7. CLINDAMYCIN PHOSPHATE [Concomitant]
     Route: 065
     Dates: start: 20130617

REACTIONS (1)
  - Hypersensitivity [Unknown]
